FAERS Safety Report 10357959 (Version 2)
Quarter: 2014Q3

REPORT INFORMATION
  Report Type: Spontaneous
  Country: US (occurrence: US)
  Receive Date: 20140801
  Receipt Date: 20140801
  Transmission Date: 20150326
  Serious: Yes (Hospitalization)
  Sender: FDA-Public Use
  Company Number: US200905003547

PATIENT
  Age: 45 Year
  Sex: Female
  Weight: 120.18 kg

DRUGS (5)
  1. ACTOS [Concomitant]
     Active Substance: PIOGLITAZONE HYDROCHLORIDE
     Indication: TYPE 2 DIABETES MELLITUS
     Dates: end: 200904
  2. NAVANE [Concomitant]
     Active Substance: THIOTHIXENE
     Indication: PSYCHOTIC DISORDER
  3. BYETTA [Suspect]
     Active Substance: EXENATIDE
     Indication: TYPE 2 DIABETES MELLITUS
     Dosage: PREVIOUSLY 5 MCG?ONGOING
     Route: 058
     Dates: start: 200812
  4. EXENATIDE 5MCG PEN, DISPOSABLE DEVICE [Concomitant]
     Active Substance: EXENATIDE
  5. GLIPIZIDE. [Concomitant]
     Active Substance: GLIPIZIDE
     Indication: TYPE 2 DIABETES MELLITUS

REACTIONS (9)
  - Malaise [Unknown]
  - Blood glucose increased [Not Recovered/Not Resolved]
  - Drug effect decreased [Unknown]
  - Asthenia [Not Recovered/Not Resolved]
  - Dysarthria [Unknown]
  - Bronchitis [Recovered/Resolved]
  - Diarrhoea [Unknown]
  - Herpes zoster [Recovered/Resolved]
  - Cough [Recovered/Resolved]

NARRATIVE: CASE EVENT DATE: 2009
